FAERS Safety Report 12143421 (Version 1)
Quarter: 2016Q1

REPORT INFORMATION
  Report Type: Spontaneous
  Country: US (occurrence: US)
  Receive Date: 20160304
  Receipt Date: 20160304
  Transmission Date: 20160526
  Serious: No
  Sender: FDA-Public Use
  Company Number: US-JNJFOC-20160121675

PATIENT
  Age: 58 Year
  Sex: Female
  Weight: 56.7 kg

DRUGS (5)
  1. WOMENS ROGAINE UNSCENTED [Suspect]
     Active Substance: MINOXIDIL
     Route: 061
  2. WOMENS ROGAINE UNSCENTED [Suspect]
     Active Substance: MINOXIDIL
     Indication: ALOPECIA
     Dosage: HALF A CAPFUL AT BEDTIME
     Route: 061
     Dates: start: 20151125
  3. CALCIUM [Concomitant]
     Active Substance: CALCIUM
     Indication: OSTEOPOROSIS PROPHYLAXIS
     Dosage: 2 A DAY FOR YEARS
     Route: 065
  4. TAMOXIFEN [Concomitant]
     Active Substance: TAMOXIFEN
     Indication: ANTIOESTROGEN THERAPY
     Dosage: EARLY SEPTEMBER 2015
     Route: 065
     Dates: start: 201509
  5. GLUCOSAMINE AND CHONDROITIN SULFATE [Concomitant]
     Indication: ARTHROPATHY
     Dosage: GLUCOSAMINE/CHONDROITIN 1500 MG/1200 MG, 4 A DAY

REACTIONS (4)
  - Off label use [Not Recovered/Not Resolved]
  - Weight increased [Not Recovered/Not Resolved]
  - Product use issue [Not Recovered/Not Resolved]
  - Product quality issue [Unknown]
